FAERS Safety Report 14861279 (Version 2)
Quarter: 2022Q2

REPORT INFORMATION
  Report Type: Report from Study
  Country: US (occurrence: US)
  Receive Date: 20180508
  Receipt Date: 20220405
  Transmission Date: 20220721
  Serious: Yes (Hospitalization)
  Sender: FDA-Public Use
  Company Number: PHHY2018US059119

PATIENT
  Age: 62 Year
  Sex: Female
  Weight: 126.98 kg

DRUGS (39)
  1. METOLAZONE [Suspect]
     Active Substance: METOLAZONE
     Indication: Hypertension
     Dosage: 2.5 MG, QW (200 UG)
     Route: 048
     Dates: start: 20180123
  2. AMILORIDE [Suspect]
     Active Substance: AMILORIDE
     Indication: Cardiac failure congestive
     Dosage: 5 MG, QD
     Route: 048
     Dates: start: 201710
  3. TORSEMIDE [Suspect]
     Active Substance: TORSEMIDE
     Indication: Hypertension
     Dosage: 100 MG, BID
     Route: 048
     Dates: start: 2016
  4. INSULIN GLARGINE [Concomitant]
     Active Substance: INSULIN GLARGINE
     Indication: Type 2 diabetes mellitus
     Dosage: UNK
     Route: 065
     Dates: start: 201710
  5. SPIRONOLACTONE [Concomitant]
     Active Substance: SPIRONOLACTONE
     Indication: Cardiac failure congestive
     Dosage: UNK
     Route: 065
     Dates: start: 2015
  6. POTASSIUM CHLORIDE [Concomitant]
     Active Substance: POTASSIUM CHLORIDE
     Indication: Vitamin K deficiency
     Dosage: UNK
     Route: 065
     Dates: start: 2015
  7. ACETAMINOPHEN [Concomitant]
     Active Substance: ACETAMINOPHEN
     Indication: Pain prophylaxis
     Dosage: UNK
     Route: 065
     Dates: start: 1973
  8. ALBUTEROL [Concomitant]
     Active Substance: ALBUTEROL
     Indication: Asthma
     Dosage: UNK
     Route: 065
     Dates: start: 2006
  9. ARTIFICIAL TEARS [Concomitant]
     Active Substance: GLYCERIN\HYPROMELLOSES\POLYETHYLENE GLYCOL 400
     Indication: Dry eye
     Dosage: UNK
     Route: 065
     Dates: start: 201706
  10. ASPIRIN [Concomitant]
     Active Substance: ASPIRIN
     Indication: Cardiovascular event prophylaxis
     Dosage: UNK
     Route: 065
     Dates: start: 2015
  11. ATORVASTATIN [Concomitant]
     Active Substance: ATORVASTATIN
     Indication: Hypercholesterolaemia
     Dosage: UNK
     Route: 065
     Dates: start: 2010
  12. BUSPIRONE [Concomitant]
     Active Substance: BUSPIRONE HYDROCHLORIDE
     Indication: Anxiety
     Dosage: UNK
     Route: 065
     Dates: start: 201708
  13. CARBAMAZEPINE [Concomitant]
     Active Substance: CARBAMAZEPINE
     Indication: Seizure
     Dosage: UNK
     Route: 065
     Dates: start: 2002
  14. CYCLOSPORINE [Concomitant]
     Active Substance: CYCLOSPORINE
     Indication: Dry eye
     Dosage: UNK
     Route: 065
     Dates: start: 2005
  15. VITAMINA D2 [Concomitant]
     Indication: Vitamin D deficiency
     Dosage: UNK
     Route: 065
     Dates: start: 201606
  16. ESCITALOPRAM [Concomitant]
     Active Substance: ESCITALOPRAM OXALATE
     Indication: Hallucination
     Dosage: UNK
     Route: 065
     Dates: start: 2010
  17. GABAPENTIN [Concomitant]
     Active Substance: GABAPENTIN
     Indication: Diabetic neuropathy
     Dosage: UNK
     Route: 065
     Dates: start: 2016
  18. GLUCAGON [Concomitant]
     Active Substance: GLUCAGON
     Indication: Type 2 diabetes mellitus
     Dosage: UNK
     Route: 065
     Dates: start: 2000
  19. MELATONIN [Concomitant]
     Active Substance: MELATONIN
     Indication: Insomnia
     Dosage: UNK
     Route: 065
     Dates: start: 2015
  20. INSULIN LISPRO [Concomitant]
     Active Substance: INSULIN LISPRO
     Indication: Type 2 diabetes mellitus
     Dosage: UNK
     Route: 065
     Dates: start: 2012
  21. SEROQUEL [Concomitant]
     Active Substance: QUETIAPINE FUMARATE
     Indication: Bipolar disorder
     Dosage: UNK
     Route: 065
     Dates: start: 1990
  22. SEROQUEL [Concomitant]
     Active Substance: QUETIAPINE FUMARATE
     Dosage: UNK
     Route: 065
     Dates: start: 20180123
  23. SUVOREXANT [Concomitant]
     Active Substance: SUVOREXANT
     Indication: Insomnia
     Dosage: UNK
     Route: 065
     Dates: start: 201710
  24. SUVOREXANT [Concomitant]
     Active Substance: SUVOREXANT
     Indication: Anxiety
  25. ALBUTEROL\IPRATROPIUM [Concomitant]
     Active Substance: ALBUTEROL\IPRATROPIUM
     Indication: Asthma
     Dosage: UNK
     Route: 065
     Dates: start: 20180123
  26. LAMOTRIGINE [Concomitant]
     Active Substance: LAMOTRIGINE
     Indication: Seizure
     Dosage: UNK
     Route: 065
     Dates: start: 2002
  27. MIRTAZAPINE [Concomitant]
     Active Substance: MIRTAZAPINE
     Indication: Pulmonary hypertension
     Dosage: UNK
     Route: 065
     Dates: start: 2000
  28. MUPIROCIN [Concomitant]
     Active Substance: MUPIROCIN
     Indication: Fungal infection
     Dosage: UNK
     Route: 065
     Dates: start: 2017
  29. MOMETASONE [Concomitant]
     Active Substance: MOMETASONE
     Indication: Pulmonary hypertension
     Dosage: UNK
     Route: 065
     Dates: start: 2016
  30. NITROFURANTOIN [Concomitant]
     Active Substance: NITROFURANTOIN
     Indication: Fungal infection
     Dosage: UNK
     Route: 065
     Dates: start: 2010
  31. NYSTATIN [Concomitant]
     Active Substance: NYSTATIN
     Indication: Fungal infection
     Dosage: UNK
     Route: 065
     Dates: start: 1997
  32. ONDANSETRON [Concomitant]
     Active Substance: ONDANSETRON
     Indication: Nausea
     Dosage: UNK
     Route: 065
     Dates: start: 1981
  33. MIRALAX [Concomitant]
     Active Substance: POLYETHYLENE GLYCOL 3350
     Indication: Constipation
     Dosage: UNK
     Route: 065
     Dates: start: 2016
  34. PERI-COLACE [Concomitant]
     Active Substance: CASANTHRANOL\DOCUSATE SODIUM
     Indication: Constipation
     Dosage: UNK
     Route: 065
     Dates: start: 2016
  35. SODIUM BICARBONATE\SODIUM CHLORIDE [Concomitant]
     Active Substance: SODIUM BICARBONATE\SODIUM CHLORIDE
     Indication: Chronic sinusitis
     Dosage: UNK
     Route: 065
     Dates: start: 201706
  36. TRAZODONE [Concomitant]
     Active Substance: TRAZODONE HYDROCHLORIDE
     Indication: Insomnia
     Dosage: UNK
     Route: 065
     Dates: start: 1990
  37. OXYGEN [Concomitant]
     Active Substance: OXYGEN
     Indication: Asthma
     Dosage: UNK
     Route: 065
     Dates: start: 2007
  38. HYDROCHLOROTHIAZIDE [Concomitant]
     Active Substance: HYDROCHLOROTHIAZIDE
     Indication: Cardiac failure congestive
     Dosage: UNK
     Route: 065
     Dates: start: 201710
  39. VITAMINS [Concomitant]
     Active Substance: VITAMINS
     Indication: General physical health deterioration
     Dosage: UNK
     Route: 065

REACTIONS (8)
  - Syncope [Unknown]
  - Dehydration [Unknown]
  - Blood creatinine increased [Unknown]
  - Blood urea increased [Unknown]
  - Haematocrit decreased [Unknown]
  - Blood glucose increased [Unknown]
  - Arteriosclerosis [Unknown]
  - White blood cell count increased [Unknown]

NARRATIVE: CASE EVENT DATE: 20180216
